FAERS Safety Report 9659930 (Version 1)
Quarter: 2013Q4

REPORT INFORMATION
  Report Type: Spontaneous
  Country: CN (occurrence: CN)
  Receive Date: 20131031
  Receipt Date: 20131031
  Transmission Date: 20140711
  Serious: Yes (Life-Threatening)
  Sender: FDA-Public Use
  Company Number: CN-BAYER-2013-131690

PATIENT
  Age: 72 Year
  Sex: Male
  Weight: 66.5 kg

DRUGS (3)
  1. ULTRAVIST 370 [Suspect]
     Indication: ARTERIOGRAM CORONARY
     Dosage: 6 ML, DIVIDED INTO 4 TIMES
     Route: 042
     Dates: start: 20121023, end: 20121023
  2. ULTRAVIST 370 [Suspect]
     Indication: CORONARY ARTERY DISEASE
  3. ULTRAVIST 370 [Suspect]
     Indication: ANGINA UNSTABLE

REACTIONS (2)
  - Dyspnoea [Recovering/Resolving]
  - Vomiting [Recovering/Resolving]
